FAERS Safety Report 16210593 (Version 1)
Quarter: 2019Q2

REPORT INFORMATION
  Report Type: Spontaneous
  Country: US (occurrence: US)
  Receive Date: 20190418
  Receipt Date: 20190418
  Transmission Date: 20190711
  Serious: No
  Sender: FDA-Public Use
  Company Number: US-LUPIN PHARMACEUTICALS INC.-2019-01396

PATIENT
  Age: 47 Year
  Sex: Female
  Weight: 79.38 kg

DRUGS (2)
  1. DESVENLAFAXINE EXTENDED RELEASE TABLET 50 MG [Suspect]
     Active Substance: DESVENLAFAXINE
     Indication: DEPRESSION
     Dosage: 50 MILLIGRAM, QD
     Route: 048
     Dates: start: 201706
  2. TREXIMET [Concomitant]
     Active Substance: NAPROXEN SODIUM\SUMATRIPTAN SUCCINATE
     Indication: MIGRAINE
     Dosage: UNK, PRN, 85 MG TO 500 MG
     Route: 065

REACTIONS (5)
  - Crying [Unknown]
  - Depression [Not Recovered/Not Resolved]
  - Feeling abnormal [Unknown]
  - Drug ineffective [Unknown]
  - Product substitution issue [Unknown]

NARRATIVE: CASE EVENT DATE: 201706
